FAERS Safety Report 19878858 (Version 4)
Quarter: 2023Q1

REPORT INFORMATION
  Report Type: Report from Study
  Country: US (occurrence: US)
  Receive Date: 20210924
  Receipt Date: 20230228
  Transmission Date: 20230417
  Serious: Yes (Hospitalization, Other)
  Sender: FDA-Public Use
  Company Number: US-ABBVIE-21K-163-4087689-00

PATIENT
  Age: 60 Year
  Sex: Female
  Weight: 52.163 kg

DRUGS (4)
  1. RINVOQ [Suspect]
     Active Substance: UPADACITINIB
     Indication: Rheumatoid arthritis
     Dosage: 15 MILLIGRAM?FIRST ADMIN DATE: 2021?LAST ADMIN DATE: SEP 2021
     Route: 048
  2. RINVOQ [Suspect]
     Active Substance: UPADACITINIB
     Indication: Rheumatoid arthritis
     Route: 048
  3. MODERNA COVID-19 VACCINE [Concomitant]
     Active Substance: ELASOMERAN
     Indication: COVID-19 immunisation
     Route: 030
     Dates: start: 20210414, end: 20210414
  4. MODERNA COVID-19 VACCINE [Concomitant]
     Active Substance: ELASOMERAN
     Indication: COVID-19 immunisation
     Route: 030
     Dates: start: 20210520, end: 20210520

REACTIONS (7)
  - Arterial occlusive disease [Recovering/Resolving]
  - Wound [Unknown]
  - Pain in extremity [Unknown]
  - Skin laceration [Unknown]
  - Skin ulcer [Unknown]
  - Scar [Unknown]
  - Infection [Unknown]

NARRATIVE: CASE EVENT DATE: 20210701
